FAERS Safety Report 7878227-6 (Version None)
Quarter: 2011Q4

REPORT INFORMATION
  Report Type: 
  Country: None (occurrence: None)
  Receive Date: 20111101
  Receipt Date: 20111023
  Transmission Date: 20120403
  Serious: Yes (Other)
  Sender: FDA-Public Use
  Company Number: DE-BRISTOL-MYERS SQUIBB COMPANY-16145518

PATIENT
  Sex: Female

DRUGS (1)
  1. YERVOY [Suspect]
     Indication: METASTATIC MALIGNANT MELANOMA
     Dosage: NO OF INFUSIONS:3

REACTIONS (4)
  - COLITIS [None]
  - PNEUMATOSIS INTESTINALIS [None]
  - ILEUS [None]
  - DIARRHOEA HAEMORRHAGIC [None]
